FAERS Safety Report 9131855 (Version 1)
Quarter: 2013Q1

REPORT INFORMATION
  Report Type: Report from Study
  Country: US (occurrence: US)
  Receive Date: 20130301
  Receipt Date: 20130301
  Transmission Date: 20140127
  Serious: No
  Sender: FDA-Public Use
  Company Number: US-MYLANLABS-2012S1017884

PATIENT
  Age: 24 Year
  Sex: Female
  Weight: 74.84 kg

DRUGS (3)
  1. AMNESTEEM CAPSULES [Suspect]
     Indication: ACNE
     Dates: start: 20120206, end: 201207
  2. ZOLOFT [Concomitant]
  3. ORAL CONTRACEPTIVE NOS [Concomitant]

REACTIONS (7)
  - Alopecia [Not Recovered/Not Resolved]
  - Lip dry [Not Recovered/Not Resolved]
  - Dry eye [Not Recovered/Not Resolved]
  - Epistaxis [Not Recovered/Not Resolved]
  - Nasal dryness [Not Recovered/Not Resolved]
  - Abdominal discomfort [Not Recovered/Not Resolved]
  - Blood triglycerides increased [Not Recovered/Not Resolved]
